FAERS Safety Report 8902622 (Version 1)
Quarter: 2012Q4

REPORT INFORMATION
  Report Type: 
  Country: PH (occurrence: PH)
  Receive Date: 20121112
  Receipt Date: 20121112
  Transmission Date: 20130627
  Serious: Yes (Death)
  Sender: FDA-Public Use
  Company Number: PH-PFIZER INC-2012277843

PATIENT
  Age: 76 Year
  Sex: Male

DRUGS (2)
  1. VORICONAZOLE [Suspect]
     Route: 042
  2. FLUCONAZOLE [Concomitant]

REACTIONS (1)
  - Renal failure acute [Fatal]
